FAERS Safety Report 4757198-5 (Version None)
Quarter: 2005Q3

REPORT INFORMATION
  Report Type: 
  Country: None (occurrence: None)
  Receive Date: 20050829
  Receipt Date: 20050825
  Transmission Date: 20060218
  Serious: Yes (Hospitalization, Other)
  Sender: FDA-Public Use
  Company Number: 216589

PATIENT
  Age: 8 Year
  Sex: Male

DRUGS (6)
  1. XOLAIR [Suspect]
     Indication: ASTHMA
     Dosage: 375 MG,K Q2W
     Dates: start: 20050207, end: 20050711
  2. ADVAIR DISKUS 100/50 [Concomitant]
  3. ASTELIN [Concomitant]
  4. NASONEX [Concomitant]
  5. PHOTOTHERAPY (PHOTOTHERAPY) [Concomitant]
  6. HYDROCORTISONE [Concomitant]

REACTIONS (5)
  - DERMATITIS ATOPIC [None]
  - ERYTHEMA [None]
  - STAPHYLOCOCCAL BACTERAEMIA [None]
  - SWELLING [None]
  - WOUND [None]
